FAERS Safety Report 8832424 (Version 2)
Quarter: 2013Q1

REPORT INFORMATION
  Report Type: Spontaneous
  Country: CA (occurrence: None)
  Receive Date: 20121005
  Receipt Date: 20130227
  Transmission Date: 20140127
  Serious: Yes (Hospitalization)
  Sender: FDA-Public Use
  Company Number: 2012033481

PATIENT
  Age: 43 Year
  Sex: Male

DRUGS (9)
  1. ZEMAIRA [Suspect]
     Indication: ALPHA-1 ANTI-TRYPSIN DEFICIENCY
     Dosage: 18:30; 60MG/KG B.W.
     Route: 042
     Dates: start: 20120508
  2. NEXIUM (ESOMEPRAZOLE MAGNESIUM) [Concomitant]
  3. ADVAIR (SERETIDE /01420901/) [Concomitant]
  4. SPIRIVA (TIOTROPIUM BROMIDE) [Concomitant]
  5. VENTOLIN [Concomitant]
  6. MICARDIS (TELMISARTAN) [Concomitant]
  7. IBUPROFEN (IBUPROFEN) [Concomitant]
  8. DOCUSATE (DOCUSATE) [Concomitant]
  9. SINGULAIR [Concomitant]

REACTIONS (1)
  - Pancreatitis [None]
